FAERS Safety Report 24424737 (Version 1)
Quarter: 2024Q4

REPORT INFORMATION
  Report Type: Spontaneous
  Country: US (occurrence: US)
  Receive Date: 20241010
  Receipt Date: 20241010
  Transmission Date: 20250115
  Serious: Yes (Death, Life-Threatening, Hospitalization, Other)
  Sender: DR REDDYS
  Company Number: None

PATIENT
  Age: 59 Year
  Sex: Male

DRUGS (5)
  1. AMIODARONE [Suspect]
     Active Substance: AMIODARONE
     Indication: Arrhythmia
  2. FLUOROURACIL [Suspect]
     Active Substance: FLUOROURACIL
     Indication: Colorectal cancer metastatic
     Dosage: 12 CYCLES OF FOLFOX
  3. LEUCOVORIN [Suspect]
     Active Substance: LEUCOVORIN\LEUCOVORIN CALCIUM
     Indication: Colorectal cancer metastatic
     Dosage: 12 CYCLES OF FOLFOX
  4. KEYTRUDA [Suspect]
     Active Substance: PEMBROLIZUMAB
     Indication: Colorectal cancer metastatic
     Dosage: TRUNCATED COURSE OF PEMBROLIZUMAB
  5. OXALIPLATIN [Suspect]
     Active Substance: OXALIPLATIN
     Indication: Colorectal cancer metastatic
     Dosage: 12 CYCLES OF FOLFOX

REACTIONS (4)
  - Pneumonitis [Fatal]
  - Pulmonary fibrosis [Fatal]
  - Diffuse alveolar damage [Fatal]
  - Pulmonary ossification [Fatal]
